FAERS Safety Report 25110517 (Version 1)
Quarter: 2025Q1

REPORT INFORMATION
  Report Type: Spontaneous
  Country: US (occurrence: US)
  Receive Date: 20250324
  Receipt Date: 20250324
  Transmission Date: 20250409
  Serious: No
  Sender: LUPIN
  Company Number: US-LUPIN PHARMACEUTICALS INC.-2025-01756

PATIENT
  Age: 75 Year
  Weight: 102.04 kg

DRUGS (1)
  1. POLYETHYLENE GLYCOL 3350 [Suspect]
     Active Substance: POLYETHYLENE GLYCOL 3350
     Indication: Intestinal obstruction
     Dosage: UNK, 17 GM WITH 8 OUNCES OF WATER

REACTIONS (2)
  - Pain [Unknown]
  - Prescription drug used without a prescription [Unknown]
